FAERS Safety Report 6502565-2 (Version None)
Quarter: 2009Q4

REPORT INFORMATION
  Report Type: 
  Country: None (occurrence: None)
  Receive Date: 20091127
  Receipt Date: 20090806
  Transmission Date: 20100525
  Serious: No
  Sender: FDA-Public Use
  Company Number: 001458

PATIENT
  Sex: Female
  Weight: 68 kg

DRUGS (6)
  1. LACOSAMIDE [Suspect]
     Indication: CONVULSION
     Dosage: (100 MG BID ORAL)
     Route: 048
     Dates: start: 20090801
  2. DEPAKOTE [Suspect]
     Indication: CONVULSION
     Dosage: (250 MG BID ORAL) (125 MG QD ORAL)
     Route: 048
     Dates: start: 20090101, end: 20090101
  3. DEPAKOTE [Suspect]
     Indication: CONVULSION
     Dosage: (250 MG BID ORAL) (125 MG QD ORAL)
     Route: 048
     Dates: start: 20090801, end: 20090802
  4. VASOTEC [Concomitant]
  5. INDERAL /00030001/ [Concomitant]
  6. KLONOPIN [Concomitant]

REACTIONS (2)
  - ASTHENIA [None]
  - DIZZINESS [None]
